FAERS Safety Report 10343619 (Version 2)
Quarter: 2014Q4

REPORT INFORMATION
  Report Type: Spontaneous
  Country: CH (occurrence: CH)
  Receive Date: 20140725
  Receipt Date: 20141008
  Transmission Date: 20150528
  Serious: Yes (Other)
  Sender: FDA-Public Use
  Company Number: CH-GLAXOSMITHKLINE-B1016492A

PATIENT

DRUGS (14)
  1. TYVERB [Suspect]
     Active Substance: LAPATINIB
     Dosage: 1 G, QD
     Route: 048
     Dates: start: 20120424, end: 20120619
  2. PANTOZOL [Concomitant]
     Active Substance: PANTOPRAZOLE SODIUM
     Indication: PROPHYLAXIS
     Dosage: 20 MG, QD
     Route: 048
     Dates: start: 20120424, end: 20120703
  3. TYVERB [Suspect]
     Active Substance: LAPATINIB
     Dosage: 1 G, QD
     Route: 048
     Dates: start: 20100210, end: 20100824
  4. TYVERB [Suspect]
     Active Substance: LAPATINIB
     Dosage: 1 G, QD
     Route: 048
     Dates: start: 20140108
  5. HERCEPTIN [Concomitant]
     Active Substance: TRASTUZUMAB
     Indication: BREAST CANCER
     Dosage: UNK
     Route: 042
     Dates: start: 20091117, end: 20101116
  6. SYMBICORT [Concomitant]
     Active Substance: BUDESONIDE\FORMOTEROL FUMARATE DIHYDRATE
     Indication: ASTHMA
     Dosage: 2 DF, QD
     Route: 055
     Dates: start: 20100622, end: 20120315
  7. MAGNESIUM [Concomitant]
     Active Substance: MAGNESIUM
     Indication: HYPOMAGNESAEMIA
     Dosage: 1 DF, QD
     Route: 048
     Dates: start: 20100126, end: 20120703
  8. TYVERB [Suspect]
     Active Substance: LAPATINIB
     Indication: BREAST CANCER
     Dosage: 750 MG, QD
     Route: 048
     Dates: start: 20091117, end: 20100209
  9. XELODA [Suspect]
     Active Substance: CAPECITABINE
     Indication: BREAST CANCER METASTATIC
     Dosage: 1500 MG, QD
     Route: 048
     Dates: start: 20120515, end: 20120616
  10. TYVERB [Suspect]
     Active Substance: LAPATINIB
     Dosage: 750 MG, QD
     Route: 048
     Dates: start: 20100901, end: 20101116
  11. TYVERB [Suspect]
     Active Substance: LAPATINIB
     Dosage: 750 MG, QD
     Route: 048
     Dates: start: 20130814, end: 20131008
  12. TYVERB [Suspect]
     Active Substance: LAPATINIB
     Dosage: 750 MG, QD
     Route: 048
     Dates: start: 20131223, end: 20140107
  13. TYVERB [Suspect]
     Active Substance: LAPATINIB
     Dosage: 1 G, QD
     Route: 048
     Dates: start: 20130222, end: 20130813
  14. DEXAMETHASONE. [Concomitant]
     Active Substance: DEXAMETHASONE
     Dosage: 2 MG, QD
     Route: 048
     Dates: start: 20120427, end: 20120608

REACTIONS (3)
  - Hyperbilirubinaemia [Recovering/Resolving]
  - Hepatotoxicity [Recovering/Resolving]
  - Pulmonary embolism [Recovered/Resolved]

NARRATIVE: CASE EVENT DATE: 20100824
